FAERS Safety Report 8688003 (Version 5)
Quarter: 2013Q3

REPORT INFORMATION
  Report Type: Report from Study
  Country: US (occurrence: US)
  Receive Date: 20120727
  Receipt Date: 20130807
  Transmission Date: 20140515
  Serious: Yes (Hospitalization)
  Sender: FDA-Public Use
  Company Number: US-ACTELION-A-US2012-68970

PATIENT
  Age: 42 Year
  Sex: Female

DRUGS (2)
  1. TRACLEER [Suspect]
     Indication: PULMONARY ARTERIAL HYPERTENSION
     Dosage: 125 MG, BID
     Route: 048
     Dates: start: 2011, end: 20130628
  2. TRACLEER [Suspect]
     Dosage: UNK
     Route: 048
     Dates: start: 2011, end: 2011

REACTIONS (9)
  - Mitral valve disease [Recovering/Resolving]
  - Aortic valve disease [Recovering/Resolving]
  - Tricuspid valve disease [Recovering/Resolving]
  - Heart valve replacement [Recovering/Resolving]
  - Hysterectomy [Unknown]
  - Pneumonia [Unknown]
  - Cardiac failure congestive [Unknown]
  - Dyspnoea [Unknown]
  - Oxygen consumption [Unknown]
